FAERS Safety Report 4712064-6 (Version None)
Quarter: 2005Q3

REPORT INFORMATION
  Report Type: 
  Country: None (occurrence: None)
  Receive Date: 20050708
  Receipt Date: 20041119
  Transmission Date: 20060218
  Serious: Yes (Other)
  Sender: FDA-Public Use
  Company Number: US-2004-035493

PATIENT
  Age: 78 Year
  Sex: Male
  Weight: 79.4 kg

DRUGS (1)
  1. ULTRAVIST 300 [Suspect]
     Indication: COMPUTERISED TOMOGRAM THORAX
     Dosage: 70 ML, 1 DOSE, INTRAVENOUS
     Route: 042
     Dates: start: 20041119, end: 20041119

REACTIONS (4)
  - BLOOD PRESSURE INCREASED [None]
  - CYANOSIS [None]
  - DYSPHAGIA [None]
  - LARYNGOSPASM [None]
